FAERS Safety Report 7178921-9 (Version None)
Quarter: 2010Q4

REPORT INFORMATION
  Report Type: 
  Country: None (occurrence: None)
  Receive Date: 20101209
  Receipt Date: 20101202
  Transmission Date: 20110411
  Serious: Yes (Death, Hospitalization)
  Sender: FDA-Public Use
  Company Number: 2010AC000250

PATIENT
  Age: 57 Year
  Sex: Male

DRUGS (44)
  1. DIGOXIN [Suspect]
     Indication: ATRIAL FIBRILLATION
     Dosage: 0.125 MG;QOD;PO
     Route: 048
     Dates: start: 20060806
  2. ALBUTEROL [Concomitant]
  3. AMIODARONE [Concomitant]
  4. ASPIRIN [Concomitant]
  5. KLONOPIN [Concomitant]
  6. BACTRIM [Concomitant]
  7. NEXIUM [Concomitant]
  8. HEPARIN [Concomitant]
  9. INSULIN [Concomitant]
  10. ATROVENT [Concomitant]
  11. ZOSYN [Concomitant]
  12. MIRALAX [Concomitant]
  13. ZOCOR [Concomitant]
  14. ULTRAM [Concomitant]
  15. EFFEXOR [Concomitant]
  16. COUMADIN [Concomitant]
  17. DUONEB [Concomitant]
  18. SOLU-CORTEF [Concomitant]
  19. REGLAN [Concomitant]
  20. ACCUZYME [Concomitant]
  21. ZOSYN [Concomitant]
  22. PREVACID [Concomitant]
  23. CEFEPIME [Concomitant]
  24. LOPRESSOR [Concomitant]
  25. MINOCIN [Concomitant]
  26. SEROQUEL [Concomitant]
  27. EFFEXOR [Concomitant]
  28. PREDNISONE [Concomitant]
  29. ACTOS [Concomitant]
  30. METOPROLOL [Concomitant]
  31. PROTONIX [Concomitant]
  32. SYNVOSTATIN [Concomitant]
  33. CLONAZEPAM [Concomitant]
  34. CIPRO [Concomitant]
  35. LEVAQUIN [Concomitant]
  36. METOCLOPROM [Concomitant]
  37. VITAMIN A [Concomitant]
  38. ASCORBIC ACID [Concomitant]
  39. ULTRAM [Concomitant]
  40. TOBRAMYCIN [Concomitant]
  41. EPOGEN [Concomitant]
  42. EPINEPHRINE [Concomitant]
  43. ATROPINE [Concomitant]
  44. DIGIBIND [Concomitant]

REACTIONS (34)
  - ANAEMIA OF CHRONIC DISEASE [None]
  - ANAL FISTULA [None]
  - ATRIAL FIBRILLATION [None]
  - CARDIO-RESPIRATORY ARREST [None]
  - CHRONIC OBSTRUCTIVE PULMONARY DISEASE [None]
  - CONFUSIONAL STATE [None]
  - CORONARY ARTERY DISEASE [None]
  - DECUBITUS ULCER [None]
  - DIABETIC NEUROPATHY [None]
  - DISORIENTATION [None]
  - DIZZINESS [None]
  - DYSLIPIDAEMIA [None]
  - HAEMODIALYSIS [None]
  - IMPAIRED HEALING [None]
  - INJURY [None]
  - LEG AMPUTATION [None]
  - MENTAL STATUS CHANGES [None]
  - MITRAL VALVE INCOMPETENCE [None]
  - OBESITY [None]
  - OSTEOARTHRITIS [None]
  - PARANOIA [None]
  - PERIPHERAL VASCULAR DISORDER [None]
  - PNEUMONIA [None]
  - PNEUMONIA ASPIRATION [None]
  - PNEUMONITIS [None]
  - PULMONARY VALVE INCOMPETENCE [None]
  - RENAL FAILURE CHRONIC [None]
  - RESPIRATORY FAILURE [None]
  - SEPTIC SHOCK [None]
  - SLEEP APNOEA SYNDROME [None]
  - THERAPEUTIC AGENT TOXICITY [None]
  - TRICUSPID VALVE INCOMPETENCE [None]
  - TYPE 2 DIABETES MELLITUS [None]
  - VENTRICULAR FIBRILLATION [None]
